FAERS Safety Report 16717456 (Version 1)
Quarter: 2019Q3

REPORT INFORMATION
  Report Type: Spontaneous
  Country: US (occurrence: US)
  Receive Date: 20190819
  Receipt Date: 20190819
  Transmission Date: 20191005
  Serious: No
  Sender: FDA-Public Use
  Company Number: US-RISING PHARMACEUTICALS, INC.-2019RIS00404

PATIENT
  Sex: Male

DRUGS (1)
  1. PYRIDOSTIGMINE BROMIDE. [Suspect]
     Active Substance: PYRIDOSTIGMINE BROMIDE
     Indication: GENERAL SYMPTOM
     Dosage: ^HIGH DOSE^

REACTIONS (2)
  - Therapeutic product effect incomplete [Unknown]
  - Product residue present [Unknown]
